FAERS Safety Report 10638101 (Version 1)
Quarter: 2014Q4

REPORT INFORMATION
  Report Type: Spontaneous
  Country: US (occurrence: US)
  Receive Date: 20141208
  Receipt Date: 20141208
  Transmission Date: 20150529
  Serious: Yes (Other)
  Sender: FDA-Public Use
  Company Number: US-PFIZER INC-2014332460

PATIENT
  Sex: Male
  Weight: 59 kg

DRUGS (2)
  1. LIPITOR [Suspect]
     Active Substance: ATORVASTATIN CALCIUM
     Dosage: UNK
  2. VIAGRA [Suspect]
     Active Substance: SILDENAFIL CITRATE
     Dosage: 100 MG, UNK

REACTIONS (4)
  - Hearing impaired [Not Recovered/Not Resolved]
  - Nasal congestion [Unknown]
  - Drug ineffective [Unknown]
  - Drug dose omission [Not Recovered/Not Resolved]
